FAERS Safety Report 9066752 (Version 1)
Quarter: 2013Q1

REPORT INFORMATION
  Report Type: Spontaneous
  Country: US (occurrence: US)
  Receive Date: 20130214
  Receipt Date: 20130214
  Transmission Date: 20140127
  Serious: Yes (Hospitalization, Disabling, Other)
  Sender: FDA-Public Use
  Company Number: US-GLAXOSMITHKLINE-A1011127A

PATIENT
  Age: 38 Year
  Sex: Female

DRUGS (8)
  1. LAMICTAL [Suspect]
     Indication: BIPOLAR DISORDER
     Dosage: 100MG TWICE PER DAY
     Route: 048
  2. FAMOTIDINE [Concomitant]
  3. PREVACID [Concomitant]
  4. LISINOPRIL + HYDROCHLOROTHIAZIDE [Concomitant]
  5. LORAZEPAM [Concomitant]
  6. ZOFRAN [Concomitant]
  7. PROMETHAZINE [Concomitant]
  8. IMITREX [Concomitant]

REACTIONS (6)
  - Acute hepatic failure [Not Recovered/Not Resolved]
  - Back pain [Unknown]
  - Chest pain [Unknown]
  - Nausea [Unknown]
  - Pain [Unknown]
  - Abdominal pain upper [Unknown]
